FAERS Safety Report 17060103 (Version 1)
Quarter: 2019Q4

REPORT INFORMATION
  Report Type: Spontaneous
  Country: US (occurrence: US)
  Receive Date: 20191121
  Receipt Date: 20191121
  Transmission Date: 20200122
  Serious: No
  Sender: FDA-Public Use
  Company Number: US-NOVOPROD-688013

PATIENT
  Age: 72 Year
  Sex: Female

DRUGS (1)
  1. NOVOLOG [Suspect]
     Active Substance: INSULIN ASPART
     Indication: TYPE 2 DIABETES MELLITUS
     Dosage: 6 IU, QD (6 UNITS BEFORE A MEAL)
     Route: 058

REACTIONS (3)
  - Asthenia [Not Recovered/Not Resolved]
  - Blood glucose increased [Recovered/Resolved]
  - Device failure [Unknown]

NARRATIVE: CASE EVENT DATE: 201909
